FAERS Safety Report 17360968 (Version 1)
Quarter: 2020Q1

REPORT INFORMATION
  Report Type: Report from Study
  Country: US (occurrence: US)
  Receive Date: 20200203
  Receipt Date: 20200203
  Transmission Date: 20200409
  Serious: Yes (Other)
  Sender: FDA-Public Use
  Company Number: US-JNJFOC-20190630425

PATIENT
  Age: 72 Year
  Sex: Female

DRUGS (1)
  1. SIMPONI [Suspect]
     Active Substance: GOLIMUMAB
     Indication: RHEUMATOID ARTHRITIS
     Route: 058
     Dates: start: 20190317, end: 20190417

REACTIONS (3)
  - Oedema peripheral [Unknown]
  - Cardiac murmur [Unknown]
  - Pneumonia [Unknown]

NARRATIVE: CASE EVENT DATE: 20190618
